FAERS Safety Report 10350900 (Version 2)
Quarter: 2014Q3

REPORT INFORMATION
  Report Type: Spontaneous
  Country: US (occurrence: US)
  Receive Date: 20140730
  Receipt Date: 20140903
  Transmission Date: 20150326
  Serious: No
  Sender: FDA-Public Use
  Company Number: US-PFIZER INC-2014210931

PATIENT
  Sex: Female

DRUGS (1)
  1. MEDROL [Suspect]
     Active Substance: METHYLPREDNISOLONE
     Dosage: ONE AND A HALF TABLETS (4MG OR 2MG)

REACTIONS (2)
  - Gastric disorder [Unknown]
  - Product quality issue [Unknown]
